FAERS Safety Report 10431083 (Version 1)
Quarter: 2014Q1

REPORT INFORMATION
  Report Type: Spontaneous
  Country: US (occurrence: None)
  Receive Date: 20130724
  Receipt Date: 20130724
  Transmission Date: 20141002
  Serious: Yes (Other)
  Sender: FDA-Public Use
  Company Number: PHEH2013US007233

PATIENT
  Sex: Female

DRUGS (1)
  1. RECLAST [Suspect]
     Dosage: UNK UKN, UNK, INTRAVENOUS
     Route: 043

REACTIONS (8)
  - Renal impairment [None]
  - Fatigue [None]
  - Blood pressure decreased [None]
  - Headache [None]
  - Dizziness [None]
  - Asthenia [None]
  - Pruritus [None]
  - Diarrhoea [None]
